FAERS Safety Report 24814003 (Version 2)
Quarter: 2025Q1

REPORT INFORMATION
  Report Type: Report from Study
  Country: ES (occurrence: ES)
  Receive Date: 20250107
  Receipt Date: 20250129
  Transmission Date: 20250408
  Serious: No
  Sender: MERZ
  Company Number: ES-ACORDA THERAPEUTICS IRELAND LIMITED-ACO_178531_2024

PATIENT
  Sex: Female

DRUGS (13)
  1. INBRIJA [Suspect]
     Active Substance: LEVODOPA
     Indication: Parkinsonian crisis
     Dates: start: 20241129
  2. INBRIJA [Suspect]
     Active Substance: LEVODOPA
     Indication: On and off phenomenon
  3. ETORICOXIB [Suspect]
     Active Substance: ETORICOXIB
     Indication: Product used for unknown indication
     Route: 065
  4. CARBIDOPA\LEVODOPA [Concomitant]
     Active Substance: CARBIDOPA\LEVODOPA
     Indication: Product used for unknown indication
     Dosage: 1 DOSAGE FORM (25/100), QID (7-11-16-20)
     Route: 065
  5. CARBIDOPA\LEVODOPA [Concomitant]
     Active Substance: CARBIDOPA\LEVODOPA
     Dosage: RETARD, 25/100 MG, QD (BEFORE GOING TO SLEEP)
     Route: 065
  6. PRAMIPEXOLE DIHYDROCHLORIDE [Concomitant]
     Active Substance: PRAMIPEXOLE DIHYDROCHLORIDE
     Indication: Product used for unknown indication
     Dosage: 2.5 MILLIGRAM, QD (AT BREAKFAST)
     Route: 065
  7. ONGENTYS [Concomitant]
     Active Substance: OPICAPONE
     Indication: Product used for unknown indication
     Dosage: 50 MILLIGRAM, QD (BEFORE DINNER)
     Route: 065
  8. CLONAZEPAM [Concomitant]
     Active Substance: CLONAZEPAM
     Indication: Product used for unknown indication
     Route: 065
  9. ALENDRONIC ACID [Concomitant]
     Active Substance: ALENDRONIC ACID
     Indication: Osteoporosis
     Dosage: 1 DOSAGE FORM, WEEKLY (ON AN EMPTY STOMACH)
     Route: 065
  10. CHOLECALCIFEROL [Concomitant]
     Active Substance: CHOLECALCIFEROL
     Indication: Osteoporosis
     Route: 065
  11. CALCIUM CARBONATE\CHOLECALCIFEROL [Concomitant]
     Active Substance: CALCIUM CARBONATE\CHOLECALCIFEROL
     Indication: Osteoporosis
     Dosage: 1 DOSAGE FORM, QD (AFTER LUNCH)
     Route: 065
  12. SINTROM [Concomitant]
     Active Substance: ACENOCOUMAROL
     Indication: Cardiac operation
     Route: 065
     Dates: start: 2004
  13. PRAVASTATIN [Concomitant]
     Active Substance: PRAVASTATIN
     Indication: Blood cholesterol
     Route: 065

REACTIONS (27)
  - Throat irritation [Recovering/Resolving]
  - Back pain [Recovering/Resolving]
  - Dry throat [Recovered/Resolved]
  - Expulsion of medication [Unknown]
  - Wrong technique in product usage process [Recovered/Resolved]
  - Incorrect dose administered by device [Unknown]
  - Inappropriate schedule of product administration [Not Recovered/Not Resolved]
  - Product dose omission issue [Unknown]
  - Product residue present [Unknown]
  - Osteoporosis [Unknown]
  - Pain [Unknown]
  - Fear of weight gain [Unknown]
  - Nervousness [Recovering/Resolving]
  - Feeling cold [Unknown]
  - Peripheral swelling [Unknown]
  - Choking sensation [Recovered/Resolved]
  - Cough [Not Recovered/Not Resolved]
  - Terminal insomnia [Unknown]
  - Dyspnoea [Recovering/Resolving]
  - Agitation [Unknown]
  - Oropharyngeal discomfort [Unknown]
  - Malaise [Unknown]
  - Fatigue [Unknown]
  - Pain in extremity [Unknown]
  - Weight increased [Unknown]
  - Gait disturbance [Unknown]
  - Nasal discharge discolouration [Not Recovered/Not Resolved]
